FAERS Safety Report 7783175-6 (Version None)
Quarter: 2011Q3

REPORT INFORMATION
  Report Type: 
  Country: None (occurrence: None)
  Receive Date: 20110928
  Receipt Date: 20110922
  Transmission Date: 20111222
  Serious: Yes (Hospitalization)
  Sender: FDA-Public Use
  Company Number: US-BRISTOL-MYERS SQUIBB COMPANY-15979057

PATIENT
  Age: 80 Year
  Sex: Male
  Weight: 67 kg

DRUGS (14)
  1. CRESTOR [Concomitant]
     Route: 048
  2. AVODART [Concomitant]
     Route: 048
  3. UROXATRAL [Concomitant]
     Route: 048
  4. COREG [Concomitant]
     Route: 048
  5. LANOXIN [Concomitant]
     Route: 048
  6. COUMADIN [Suspect]
     Dates: end: 20110725
  7. ENABLEX [Concomitant]
     Route: 048
  8. EXELON [Concomitant]
  9. POTASSIUM [Concomitant]
  10. HYDROCHLOROTHIAZIDE [Concomitant]
     Route: 048
  11. NAMENDA [Interacting]
     Indication: DEMENTIA
     Dosage: TABS10MG-5MG 2IN1D 5/24-6/6/11 10MG 5MG-15MG 1IN1 6/7-7/13/11 20MG-10MG 2IN1D 6/14-7/25/11
     Route: 048
     Dates: start: 20110524, end: 20110725
  12. LISINOPRIL [Concomitant]
     Route: 048
  13. LASIX [Concomitant]
     Route: 048
  14. ZOCOR [Concomitant]

REACTIONS (5)
  - INTRAVENTRICULAR HAEMORRHAGE [None]
  - CEREBROVASCULAR ACCIDENT [None]
  - DEMENTIA [None]
  - DRUG INTERACTION [None]
  - FALL [None]
